FAERS Safety Report 25747882 (Version 1)
Quarter: 2025Q3

REPORT INFORMATION
  Report Type: Spontaneous
  Country: US (occurrence: US)
  Receive Date: 20250901
  Receipt Date: 20250901
  Transmission Date: 20251021
  Serious: No
  Sender: Hugel Aesthetics
  Company Number: US-Hugel Aesthetics-2183588

PATIENT
  Age: 46 Year
  Sex: Female

DRUGS (2)
  1. LETYBO [Suspect]
     Active Substance: LETIBOTULINUMTOXINA-WLBG
     Indication: Skin wrinkling
  2. LETYBO [Suspect]
     Active Substance: LETIBOTULINUMTOXINA-WLBG
     Indication: Product use in unapproved indication

REACTIONS (5)
  - Throat irritation [Unknown]
  - Nausea [Unknown]
  - Injection site erythema [Unknown]
  - Injection site pain [Recovering/Resolving]
  - Injection site pain [Unknown]

NARRATIVE: CASE EVENT DATE: 20250610
